FAERS Safety Report 4342885-3 (Version None)
Quarter: 2004Q2

REPORT INFORMATION
  Report Type: 
  Country: None (occurrence: None)
  Receive Date: 20040416
  Receipt Date: 20040406
  Transmission Date: 20050107
  Serious: Yes (Hospitalization)
  Sender: FDA-Public Use
  Company Number: US-JNJFOC-20040302712

PATIENT
  Age: 18 Year
  Sex: Female
  Weight: 113.3993 kg

DRUGS (4)
  1. TOPAMAX [Suspect]
     Indication: MIGRAINE PROPHYLAXIS
     Dosage: 250 MG, IN 1 DAY, ORAL
     Route: 048
  2. ALLEGRA [Concomitant]
     Indication: HYPERSENSITIVITY
  3. VERAPAMIL [Concomitant]
  4. ZOLOFT [Concomitant]

REACTIONS (2)
  - MIGRAINE [None]
  - PLATELET DISORDER [None]
